FAERS Safety Report 5705523-0 (Version None)
Quarter: 2008Q2

REPORT INFORMATION
  Report Type: 
  Country: None (occurrence: None)
  Receive Date: 20080415
  Receipt Date: 20080408
  Transmission Date: 20081010
  Serious: Yes (Other)
  Sender: FDA-Public Use
  Company Number: US-ASTRAZENECA-2008UW07049

PATIENT
  Sex: Male

DRUGS (1)
  1. SYMBICORT [Suspect]
     Indication: LUNG INFECTION
     Dosage: 2 PUFFS, BID
     Route: 055
     Dates: start: 20080401

REACTIONS (4)
  - DYSPNOEA [None]
  - HEADACHE [None]
  - SENSATION OF PRESSURE [None]
  - SINUS CONGESTION [None]
